FAERS Safety Report 8614348-8 (Version None)
Quarter: 2012Q3

REPORT INFORMATION
  Report Type: 
  Country: None (occurrence: None)
  Receive Date: 20120823
  Receipt Date: 20120817
  Transmission Date: 20120928
  Serious: No
  Sender: FDA-Public Use
  Company Number: SE-JNJFOC-20120810175

PATIENT
  Age: 34 Year
  Sex: Male

DRUGS (1)
  1. REMICADE [Suspect]
     Indication: CROHN'S DISEASE
     Route: 042
     Dates: start: 20090101, end: 20120803

REACTIONS (3)
  - ALOPECIA AREATA [None]
  - HERPES ZOSTER [None]
  - FUNGAL INFECTION [None]
